FAERS Safety Report 6875504-2 (Version None)
Quarter: 2010Q3

REPORT INFORMATION
  Report Type: 
  Country: None (occurrence: None)
  Receive Date: 20100727
  Receipt Date: 20100715
  Transmission Date: 20110219
  Serious: No
  Sender: FDA-Public Use
  Company Number: JP-JNJFOC-20100705194

PATIENT

DRUGS (1)
  1. DUROTEP MT [Suspect]
     Indication: HALLUCINATION, VISUAL
     Route: 062

REACTIONS (2)
  - DRUG PRESCRIBING ERROR [None]
  - OFF LABEL USE [None]
